FAERS Safety Report 9830016 (Version 3)
Quarter: 2014Q1

REPORT INFORMATION
  Report Type: Spontaneous
  Country: BR (occurrence: BR)
  Receive Date: 20140120
  Receipt Date: 20140214
  Transmission Date: 20141002
  Serious: No
  Sender: FDA-Public Use
  Company Number: BR-GALDERMA-BR13004035

PATIENT
  Age: 31 Year
  Sex: Female
  Weight: 56 kg

DRUGS (4)
  1. AQUACLIN GEL DE TRATAMENTO ANTIACNE [Suspect]
     Indication: ACNE
     Dosage: 5%
     Route: 061
     Dates: start: 20131205, end: 20131206
  2. EFFACLAR SPF 30 [Concomitant]
     Indication: PROPHYLAXIS
     Route: 061
  3. EFFACLAR SPF 30 [Concomitant]
     Route: 061
  4. EFFACLAR [Concomitant]
     Indication: SEBORRHOEA
     Route: 061

REACTIONS (5)
  - Skin hyperpigmentation [Recovering/Resolving]
  - Pruritus [Recovered/Resolved]
  - Erythema [Recovering/Resolving]
  - Skin exfoliation [Recovering/Resolving]
  - Photosensitivity reaction [Recovering/Resolving]
